FAERS Safety Report 5658576-2 (Version None)
Quarter: 2008Q1

REPORT INFORMATION
  Report Type: 
  Country: None (occurrence: None)
  Receive Date: 20080310
  Receipt Date: 20070312
  Transmission Date: 20080703
  Serious: No
  Sender: FDA-Public Use
  Company Number: US-BAYER-200710779BCC

PATIENT
  Age: 65 Year
  Sex: Male
  Weight: 122 kg

DRUGS (5)
  1. ALEVE [Suspect]
     Indication: ARTHRALGIA
     Dosage: UNIT DOSE: 220 MG
     Route: 048
     Dates: end: 20070311
  2. ASPIRIN [Suspect]
     Indication: CARDIOVASCULAR EVENT PROPHYLAXIS
     Dosage: TOTAL DAILY DOSE: 81 MG  UNIT DOSE: 81 MG
     Route: 048
  3. THREE HIGH BLOOD PRESSURE MEDICATIONS [Concomitant]
  4. NEXIUM [Concomitant]
  5. WATER PILL [Concomitant]

REACTIONS (1)
  - WHEEZING [None]
